FAERS Safety Report 18481563 (Version 1)
Quarter: 2020Q4

REPORT INFORMATION
  Report Type: Spontaneous
  Country: FR (occurrence: FR)
  Receive Date: 20201109
  Receipt Date: 20201109
  Transmission Date: 20210114
  Serious: Yes (Hospitalization)
  Sender: FDA-Public Use
  Company Number: FR-CUMBERLAND-2020-FR-000013

PATIENT
  Age: 71 Year
  Sex: Male

DRUGS (3)
  1. PREDINISONE 10 MG TABLETS [Suspect]
     Active Substance: PREDNISONE
  2. METHOTREXATE. [Suspect]
     Active Substance: METHOTREXATE
  3. RITUXIMAB. [Suspect]
     Active Substance: RITUXIMAB

REACTIONS (3)
  - Pneumonia [Recovered/Resolved]
  - COVID-19 [Recovered/Resolved]
  - Acute respiratory distress syndrome [Recovered/Resolved]

NARRATIVE: CASE EVENT DATE: 20200401
